FAERS Safety Report 5674186-5 (Version None)
Quarter: 2008Q1

REPORT INFORMATION
  Report Type: 
  Country: None (occurrence: None)
  Receive Date: 20080320
  Receipt Date: 20080228
  Transmission Date: 20080703
  Serious: Yes (Hospitalization)
  Sender: FDA-Public Use
  Company Number: PHHY2008US02477

PATIENT
  Age: 3 Year
  Sex: Male
  Weight: 13.1 kg

DRUGS (4)
  1. ZELNORM [Suspect]
     Indication: CONSTIPATION
     Dosage: 1 MG, UNK
     Route: 048
     Dates: start: 20071220, end: 20071222
  2. GOLYTELY [Concomitant]
     Indication: CONSTIPATION
     Dosage: 500 CM3, UNK
     Dates: start: 20071220, end: 20080222
  3. FERROUS SULFATE TAB [Concomitant]
     Indication: IRON DEFICIENCY
     Dosage: 110 MG, UNK
     Route: 048
     Dates: start: 20080113
  4. OMEPRAZOLE [Concomitant]
     Indication: GASTROOESOPHAGEAL REFLUX DISEASE
     Dosage: 13 MG, UNK
     Route: 048
     Dates: start: 20071208

REACTIONS (4)
  - ABDOMINAL PAIN [None]
  - IMPAIRED GASTRIC EMPTYING [None]
  - OBSTRUCTION [None]
  - VOMITING [None]
